FAERS Safety Report 13382144 (Version 1)
Quarter: 2017Q1

REPORT INFORMATION
  Report Type: Report from Study
  Country: DE (occurrence: DE)
  Receive Date: 20170329
  Receipt Date: 20170329
  Transmission Date: 20170429
  Serious: Yes (Life-Threatening, Hospitalization, Other)
  Sender: FDA-Public Use
  Company Number: PHHY2016DE067553

PATIENT
  Age: 76 Year
  Sex: Male
  Weight: 110 kg

DRUGS (14)
  1. COSENTYX [Suspect]
     Active Substance: SECUKINUMAB
     Dosage: 300 MG, UNK PER APPLICATION
     Route: 065
     Dates: start: 20151216
  2. COSENTYX [Suspect]
     Active Substance: SECUKINUMAB
     Dosage: 300 MG, UNK PER APPLICATION
     Route: 065
     Dates: start: 20151209
  3. COSENTYX [Suspect]
     Active Substance: SECUKINUMAB
     Dosage: 300 MG, UNK PER APPLICATION
     Route: 065
     Dates: start: 20151202
  4. COSENTYX [Suspect]
     Active Substance: SECUKINUMAB
     Dosage: 300 MG, UNK PER APPLICATION
     Route: 065
     Dates: start: 20160120
  5. COSENTYX [Suspect]
     Active Substance: SECUKINUMAB
     Dosage: 300 MG, UNK PER APPLICATION
     Route: 065
     Dates: start: 20160224
  6. COSENTYX [Suspect]
     Active Substance: SECUKINUMAB
     Dosage: 300 MG, UNK PER APPLICATION
     Route: 065
     Dates: start: 20160323
  7. ATORVASTATIN [Concomitant]
     Active Substance: ATORVASTATIN
     Indication: DYSLIPIDAEMIA
     Dosage: 40 OT, UNK
     Route: 048
     Dates: start: 201501
  8. FUCIDINE [Concomitant]
     Active Substance: FUSIDIC ACID
     Indication: DERMATOSIS
     Route: 061
     Dates: start: 201501, end: 20151125
  9. COSENTYX [Suspect]
     Active Substance: SECUKINUMAB
     Dosage: 300 MG, UNK PER APPLICATION
     Route: 065
     Dates: start: 20160421
  10. TANNOLACT [Concomitant]
     Indication: DERMATOSIS
     Route: 061
     Dates: start: 201501, end: 20151125
  11. COSENTYX [Suspect]
     Active Substance: SECUKINUMAB
     Indication: PSORIASIS
     Dosage: 300 MG, UNK PER APPLICATION
     Route: 065
     Dates: start: 20151125
  12. COSENTYX [Suspect]
     Active Substance: SECUKINUMAB
     Dosage: 300 MG, UNK PER APPLICATION
     Route: 065
     Dates: start: 20151222
  13. COSENTYX [Suspect]
     Active Substance: SECUKINUMAB
     Dosage: 300 MG, UNK PER APPLICATION
     Route: 058
     Dates: start: 201605
  14. CANDESARTAN [Concomitant]
     Active Substance: CANDESARTAN
     Indication: HYPERTENSION
     Dosage: 32 MG, UNK
     Route: 048
     Dates: start: 201501

REACTIONS (2)
  - Desmoplastic melanoma [Recovered/Resolved]
  - Basal cell carcinoma [Recovered/Resolved]

NARRATIVE: CASE EVENT DATE: 20160426
